FAERS Safety Report 7688341-6 (Version None)
Quarter: 2011Q3

REPORT INFORMATION
  Report Type: 
  Country: None (occurrence: None)
  Receive Date: 20110817
  Receipt Date: 20110811
  Transmission Date: 20111222
  Serious: Yes (Other)
  Sender: FDA-Public Use
  Company Number: JP-PFIZER INC-2011185079

PATIENT
  Age: 59 Year
  Sex: Male
  Weight: 58.1 kg

DRUGS (11)
  1. OMEPRAZOLE [Concomitant]
     Indication: GASTRIC ULCER
     Dosage: 20 MG, 1X/DAY
     Route: 048
  2. LOXONIN [Concomitant]
     Dosage: 60 MG, 2X/DAY
     Route: 048
     Dates: start: 20090430, end: 20090506
  3. LEVOTHYROXINE SODIUM [Concomitant]
     Dosage: 25 UG, 1X/DAY
     Route: 048
     Dates: end: 20100414
  4. LOXONIN [Concomitant]
     Dosage: AS NEEDED
     Route: 048
     Dates: start: 20090422, end: 20090429
  5. LEVOTHYROXINE SODIUM [Concomitant]
     Dosage: 150 UG, 1X/DAY
     Dates: start: 20101111, end: 20101215
  6. LEVOTHYROXINE SODIUM [Concomitant]
     Dosage: 100 UG, 1X/DAY
     Dates: start: 20101216, end: 20110210
  7. LEVOTHYROXINE SODIUM [Concomitant]
     Dosage: 200 UG, 1X/DAY
     Dates: start: 20100930, end: 20101110
  8. LOXONIN [Concomitant]
     Indication: HYPOAESTHESIA
     Dosage: 60 MG, AS NEEDED
     Route: 048
     Dates: start: 20100415
  9. SUNITINIB MALATE [Suspect]
     Indication: RENAL CELL CARCINOMA
     Dosage: 25 MG, 1X/DAY
     Dates: start: 20090414, end: 20101216
  10. PASTARON [Concomitant]
     Indication: PROPHYLAXIS
     Dosage: UNK
     Route: 061
     Dates: start: 20090422
  11. LEVOTHYROXINE SODIUM [Concomitant]
     Dosage: 100 UG, 1X/DAY
     Route: 048
     Dates: start: 20100415

REACTIONS (1)
  - CONVULSION [None]
